FAERS Safety Report 5288242-7 (Version None)
Quarter: 2007Q2

REPORT INFORMATION
  Report Type: 
  Country: None (occurrence: None)
  Receive Date: 20070405
  Receipt Date: 20070326
  Transmission Date: 20071010
  Serious: Yes (Congenital Anomaly)
  Sender: FDA-Public Use
  Company Number: DE-JNJFOC-20070102877

PATIENT

DRUGS (3)
  1. TOPAMAX [Suspect]
     Indication: DRUG EXPOSURE DURING PREGNANCY
  2. FEMIBION 800 [Concomitant]
  3. MAGNESIOCARD [Concomitant]

REACTIONS (4)
  - ABDOMINAL WALL ANOMALY [None]
  - HYDROCEPHALUS [None]
  - KYPHOSIS [None]
  - SPINA BIFIDA [None]
